FAERS Safety Report 5899192-7 (Version None)
Quarter: 2008Q3

REPORT INFORMATION
  Report Type: 
  Country: None (occurrence: None)
  Receive Date: 20080925
  Receipt Date: 20080911
  Transmission Date: 20090109
  Serious: No
  Sender: FDA-Public Use
  Company Number: US-B.I. PHARMACEUTICALS,INC./RIDGEFIELD-2008-BP-12860BP

PATIENT
  Sex: Female

DRUGS (6)
  1. COMBIVENT [Suspect]
     Indication: CHRONIC OBSTRUCTIVE PULMONARY DISEASE
     Dosage: 6PUF
     Route: 055
     Dates: start: 20080105
  2. LEVOTHYROXINE SODIUM [Concomitant]
     Indication: HYPOTHYROIDISM
     Dosage: .075MG
  3. HYDROCHLOROTHIAZIDE [Concomitant]
     Indication: HYPERTENSION
     Dosage: .25MG
  4. MELOXICAM [Concomitant]
     Indication: ARTHRITIS
     Dosage: 15MG
  5. OPTIVAR [Concomitant]
     Indication: HYPERSENSITIVITY
  6. ALTACE [Concomitant]
     Indication: HYPERTENSION
     Dosage: 5MG

REACTIONS (1)
  - DYSGEUSIA [None]
